FAERS Safety Report 9049939 (Version 1)
Quarter: 2013Q1

REPORT INFORMATION
  Report Type: Spontaneous
  Country: US (occurrence: US)
  Receive Date: 20130205
  Receipt Date: 20130205
  Transmission Date: 20140127
  Serious: Yes (Other)
  Sender: FDA-Public Use
  Company Number: US-BAYER-2013-014899

PATIENT
  Age: 93 Year
  Sex: Male
  Weight: 58.96 kg

DRUGS (1)
  1. PHILLIPS^ MILK OF MAGNESIA [Suspect]
     Indication: CONSTIPATION
     Dosage: 4 DF, QD FOR YEARS
     Route: 048
     Dates: start: 2008

REACTIONS (2)
  - Medication error [None]
  - Drug dependence [None]
